FAERS Safety Report 25860032 (Version 1)
Quarter: 2025Q3

REPORT INFORMATION
  Report Type: Spontaneous
  Country: US (occurrence: None)
  Receive Date: 20250927
  Receipt Date: 20250927
  Transmission Date: 20251020
  Serious: Yes (Other)
  Sender: FDA-CTU
  Company Number: None

PATIENT
  Age: 19 Year
  Sex: Female
  Weight: 64.35 kg

DRUGS (2)
  1. .DELTA.9-TETRAHYDROCANNABINOLIC ACID\HERBALS [Suspect]
     Active Substance: .DELTA.9-TETRAHYDROCANNABINOLIC ACID\HERBALS
  2. Daily multivitamin up and up women^s [Concomitant]

REACTIONS (6)
  - Vision blurred [None]
  - Insomnia [None]
  - Paranoia [None]
  - Panic attack [None]
  - Substance use [None]
  - Suspected counterfeit product [None]

NARRATIVE: CASE EVENT DATE: 20250922
